FAERS Safety Report 6246326-0 (Version None)
Quarter: 2009Q2

REPORT INFORMATION
  Report Type: 
  Country: None (occurrence: None)
  Receive Date: 20090626
  Receipt Date: 20090622
  Transmission Date: 20091009
  Serious: Yes (Hospitalization, Other)
  Sender: FDA-Public Use
  Company Number: HQWYE172404MAY06

PATIENT
  Sex: Female

DRUGS (24)
  1. SIROLIMUS [Suspect]
     Indication: PROPHYLAXIS AGAINST TRANSPLANT REJECTION
     Dosage: 6 MG QD AND TAPERED
     Route: 048
     Dates: start: 20030908, end: 20040112
  2. SIROLIMUS [Suspect]
     Route: 048
     Dates: start: 20040116, end: 20040119
  3. DACLIZUMAB [Concomitant]
     Indication: PROPHYLAXIS AGAINST TRANSPLANT REJECTION
     Dosage: VARIABLE DOSING
     Route: 042
     Dates: start: 20030908
  4. BACTRIM DS [Concomitant]
     Dosage: UNKNOWN
     Route: 065
     Dates: start: 20030909
  5. ATENOLOL [Concomitant]
     Dosage: UNKNOWN
     Route: 065
     Dates: start: 20031223
  6. SULFASALAZINE [Concomitant]
     Dosage: UNKNOWN
     Route: 065
     Dates: start: 20031206
  7. CYMEVENE [Concomitant]
     Dosage: UNKNOWN
     Route: 065
     Dates: start: 20030909, end: 20030909
  8. CYMEVENE [Concomitant]
     Dosage: UNKNOWN
     Route: 065
     Dates: start: 20030910
  9. AUGMENTIN [Concomitant]
     Dosage: UNKNOWN
     Dates: start: 20031119, end: 20031209
  10. AUGMENTIN [Concomitant]
     Dosage: UNKNOWN
     Dates: start: 20031223, end: 20040109
  11. CEFACIDAL [Concomitant]
     Dosage: UNKNOWN
     Dates: start: 20030908, end: 20030909
  12. CIPROXINE [Concomitant]
     Dosage: UNKNOWN
     Dates: start: 20030910, end: 20030910
  13. CIPROXINE [Concomitant]
     Dosage: UNKNOWN
     Dates: start: 20030911, end: 20030918
  14. FRAXIPARINE [Concomitant]
     Dosage: UNKNOWN
     Dates: start: 20030910, end: 20030919
  15. LASIX [Concomitant]
     Dosage: UNKNOWN
     Dates: start: 20030908
  16. SALAZOPYRINE [Concomitant]
     Dosage: UNKNOWN
     Dates: start: 20031006
  17. PRAVASTATIN SODIUM [Concomitant]
     Dosage: UNKNOWN
     Dates: start: 20031119
  18. TENORMIN [Concomitant]
     Dosage: UNKNOWN
     Dates: start: 20030910, end: 20040211
  19. ZESTRIL [Concomitant]
     Dosage: UNKNOWN
     Dates: start: 20030912, end: 20031006
  20. ZINACEF [Concomitant]
     Dosage: UNKNOWN
     Dates: start: 20030909, end: 20030912
  21. MEDROL [Concomitant]
     Indication: PROPHYLAXIS AGAINST TRANSPLANT REJECTION
     Route: 048
     Dates: start: 20030910
  22. MEDROL [Concomitant]
     Route: 048
     Dates: start: 20040211
  23. SOLU-MEDROL [Concomitant]
     Indication: PROPHYLAXIS AGAINST TRANSPLANT REJECTION
     Dosage: VARIABLE DOSING
     Route: 042
     Dates: start: 20030908, end: 20030910
  24. MYCOPHENOLATE MOFETIL [Concomitant]
     Indication: PROPHYLAXIS AGAINST TRANSPLANT REJECTION
     Dosage: VARIABLE DOSING (500 MG BID - 1 G BID)
     Route: 048
     Dates: start: 20030908

REACTIONS (4)
  - C-REACTIVE PROTEIN INCREASED [None]
  - KIDNEY INFECTION [None]
  - POLYARTHRITIS [None]
  - RENAL CYST [None]
